FAERS Safety Report 6798244-7 (Version None)
Quarter: 2010Q2

REPORT INFORMATION
  Report Type: 
  Country: None (occurrence: None)
  Receive Date: 20100623
  Receipt Date: 20100609
  Transmission Date: 20101027
  Serious: Yes (Hospitalization, Disabling)
  Sender: FDA-Public Use
  Company Number: A-CH2010-35781

PATIENT
  Age: 78 Year
  Sex: Female
  Weight: 70 kg

DRUGS (13)
  1. TRACLEER [Suspect]
     Indication: SKIN ULCER
     Dosage: 125 MG, BID
     Dates: start: 20061001, end: 20100120
  2. PREDNISOLONE [Concomitant]
  3. SPIRIX (SPIRONOLACTONE) [Concomitant]
  4. TRAMADOL HCL [Concomitant]
  5. INSULIN (INSULIN HUMAN) [Concomitant]
  6. LACTULOSE [Concomitant]
  7. ADALAT [Concomitant]
  8. FUROSEMIDE [Concomitant]
  9. HJERDYL (ACETYLSALICYLIC ACID) [Concomitant]
  10. JERN C (ASCORBIC ACID, FERROUS FUMARATE) [Concomitant]
  11. POTASSIUM CHLORIDE [Concomitant]
  12. NEXIUM IV [Concomitant]
  13. PINEX (PARACETAMOL) [Concomitant]

REACTIONS (2)
  - ASCITES [None]
  - HEPATIC CIRRHOSIS [None]
